FAERS Safety Report 11538743 (Version 1)
Quarter: 2015Q3

REPORT INFORMATION
  Report Type: Spontaneous
  Country: US (occurrence: None)
  Receive Date: 20150922
  Receipt Date: 20150922
  Transmission Date: 20151125
  Serious: Yes (Other)
  Sender: FDA-Public Use
  Company Number: None

PATIENT
  Age: 60 Year
  Sex: Female
  Weight: 95.26 kg

DRUGS (7)
  1. ASTEPRO [Concomitant]
     Active Substance: AZELASTINE HYDROCHLORIDE
  2. NOVOLIN N [Concomitant]
     Active Substance: INSULIN HUMAN
  3. PAPAZOLE [Concomitant]
  4. METHIMAZOLE. [Suspect]
     Active Substance: METHIMAZOLE
     Indication: HYPERTHYROIDISM
     Route: 048
     Dates: start: 201506, end: 201508
  5. METHIMAZOLE. [Suspect]
     Active Substance: METHIMAZOLE
     Indication: BASEDOW^S DISEASE
     Route: 048
     Dates: start: 201506, end: 201508
  6. NOVOLOG [Concomitant]
     Active Substance: INSULIN ASPART
  7. PRIMIVIL [Concomitant]

REACTIONS (2)
  - Breast swelling [None]
  - Breast pain [None]

NARRATIVE: CASE EVENT DATE: 201508
